FAERS Safety Report 5313242-8 (Version None)
Quarter: 2007Q2

REPORT INFORMATION
  Report Type: 
  Country: None (occurrence: None)
  Receive Date: 20070501
  Receipt Date: 20070425
  Transmission Date: 20071010
  Serious: Yes (Hospitalization)
  Sender: FDA-Public Use
  Company Number: FRWYE535826APR07

PATIENT
  Age: 5 Year
  Sex: Male

DRUGS (2)
  1. ADVIL [Suspect]
     Indication: PYREXIA
     Dosage: UNKNOWN
     Route: 048
     Dates: start: 20070331
  2. NIFLURIL [Suspect]
     Indication: PYREXIA
     Dosage: UNKNOWN
     Route: 048
     Dates: start: 20070402

REACTIONS (4)
  - ABSCESS [None]
  - ACUTE SINUSITIS [None]
  - OTITIS MEDIA ACUTE [None]
  - STAPHYLOCOCCAL BACTERAEMIA [None]
